FAERS Safety Report 25104474 (Version 1)
Quarter: 2025Q1

REPORT INFORMATION
  Report Type: Spontaneous
  Country: AR (occurrence: AR)
  Receive Date: 20250321
  Receipt Date: 20250321
  Transmission Date: 20250409
  Serious: Yes (Hospitalization)
  Sender: ROCHE
  Company Number: AR-ROCHE-10000234406

PATIENT
  Age: 65 Year
  Sex: Female

DRUGS (1)
  1. PHESGO [Suspect]
     Active Substance: HYALURONIDASE-ZZXF\PERTUZUMAB\TRASTUZUMAB
     Indication: Breast cancer
     Route: 058

REACTIONS (5)
  - Mucosal inflammation [Recovering/Resolving]
  - Diarrhoea [Unknown]
  - White blood cell count decreased [Recovering/Resolving]
  - Neoplasm [Unknown]
  - Abdominal neoplasm [Unknown]
